FAERS Safety Report 5516799-7 (Version None)
Quarter: 2007Q4

REPORT INFORMATION
  Report Type: 
  Country: None (occurrence: None)
  Receive Date: 20071114
  Receipt Date: 20071102
  Transmission Date: 20080405
  Serious: Yes (Other)
  Sender: FDA-Public Use
  Company Number: US-WYE-H01038907

PATIENT
  Sex: Male
  Weight: 65.83 kg

DRUGS (10)
  1. TORISEL [Suspect]
     Indication: METASTATIC RENAL CELL CARCINOMA
     Dosage: UNSPECIFIED
     Route: 042
     Dates: start: 20070901
  2. ALTACE [Concomitant]
  3. DIGITEK [Concomitant]
  4. GLYBURIDE [Concomitant]
  5. POTASSIUM CHLORIDE [Concomitant]
  6. COREG [Concomitant]
  7. CENTRUM [Concomitant]
  8. ACETYLSALICYLIC ACID SRT [Concomitant]
     Dosage: 81MG FREQUENCY NOT SPECIFIED
  9. LASIX [Concomitant]
  10. SPIRONOLACTONE [Concomitant]

REACTIONS (4)
  - BLOOD GLUCOSE INCREASED [None]
  - CONDITION AGGRAVATED [None]
  - LUNG INFECTION [None]
  - NEOPLASM PROGRESSION [None]
